FAERS Safety Report 7939114-8 (Version None)
Quarter: 2011Q4

REPORT INFORMATION
  Report Type: 
  Country: None (occurrence: None)
  Receive Date: 20111124
  Receipt Date: 20111006
  Transmission Date: 20120403
  Serious: Yes (Other)
  Sender: FDA-Public Use
  Company Number: US-ROCHE-1015184

PATIENT
  Sex: Female

DRUGS (3)
  1. AVASTIN [Suspect]
     Indication: NEUROBLASTOMA
     Dates: start: 20110603
  2. IRINOTECAN HYDROCHLORIDE [Suspect]
     Indication: NEUROBLASTOMA
     Dates: start: 20110603
  3. TEMOZOLOMIDE [Suspect]
     Indication: NEUROBLASTOMA
     Dates: start: 20110603

REACTIONS (2)
  - ASPARTATE AMINOTRANSFERASE INCREASED [None]
  - ALANINE AMINOTRANSFERASE INCREASED [None]
